FAERS Safety Report 8871183 (Version 1)
Quarter: 2012Q4

REPORT INFORMATION
  Report Type: 
  Country: US (occurrence: US)
  Receive Date: 20121026
  Receipt Date: 20121026
  Transmission Date: 20130627
  Serious: No
  Sender: FDA-Public Use
  Company Number: US-AMGEN-USASP2012042284

PATIENT
  Age: 59 Year
  Sex: Male
  Weight: 129.25 kg

DRUGS (6)
  1. ENBREL [Suspect]
     Indication: PRODUCT USED FOR UNKNOWN INDICATION
     Dosage: 25 mg, 2 times/wk
     Route: 058
     Dates: end: 201201
  2. LISINOPRIL [Concomitant]
     Dosage: 20 mg, UNK
  3. FENOFIBRATE [Concomitant]
     Dosage: 67 mg, UNK
  4. MYCELEX TROCHE [Concomitant]
     Dosage: 10 mg, UNK
  5. HYDROCHLOROTH [Concomitant]
     Dosage: 12.5 mg, UNK
  6. LEVOTHYROXIN [Concomitant]
     Dosage: 100 mcg, UNK

REACTIONS (3)
  - Oedema peripheral [Recovering/Resolving]
  - Psoriatic arthropathy [Recovering/Resolving]
  - Candidiasis [Recovering/Resolving]
